FAERS Safety Report 7180548-X (Version None)
Quarter: 2010Q4

REPORT INFORMATION
  Report Type: 
  Country: None (occurrence: None)
  Receive Date: 20101221
  Receipt Date: 20101216
  Transmission Date: 20110411
  Serious: Yes (Death)
  Sender: FDA-Public Use
  Company Number: JP-PFIZER INC-2010173939

PATIENT

DRUGS (1)
  1. SILDENAFIL CITRATE [Suspect]
     Dosage: UNK

REACTIONS (1)
  - DEATH [None]
